FAERS Safety Report 7965659-0 (Version None)
Quarter: 2011Q4

REPORT INFORMATION
  Report Type: 
  Country: None (occurrence: None)
  Receive Date: 20111208
  Receipt Date: 20111130
  Transmission Date: 20120403
  Serious: Yes (Hospitalization)
  Sender: FDA-Public Use
  Company Number: FR-NOVOPROD-338080

PATIENT

DRUGS (4)
  1. VICTOZA [Suspect]
     Indication: TYPE 2 DIABETES MELLITUS
     Dosage: 0.6 MG, QD
     Route: 058
     Dates: start: 20111019
  2. METFORMIN HCL [Concomitant]
  3. SIMVASTATIN [Concomitant]
  4. DIAMICRON [Concomitant]

REACTIONS (1)
  - PANCREATITIS [None]
